FAERS Safety Report 14023374 (Version 2)
Quarter: 2017Q4

REPORT INFORMATION
  Report Type: Report from Study
  Country: US (occurrence: US)
  Receive Date: 20170929
  Receipt Date: 20171017
  Transmission Date: 20180321
  Serious: Yes (Other)
  Sender: FDA-Public Use
  Company Number: US-EMD SERONO-E2B_80083156

PATIENT
  Sex: Male

DRUGS (2)
  1. IBUPROFEN. [Concomitant]
     Active Substance: IBUPROFEN
     Indication: PREMEDICATION
  2. REBIF [Suspect]
     Active Substance: INTERFERON BETA-1A
     Indication: MULTIPLE SCLEROSIS
     Route: 058
     Dates: start: 20051216

REACTIONS (6)
  - Ill-defined disorder [Unknown]
  - Liver function test increased [Recovered/Resolved]
  - Blood cholesterol increased [Unknown]
  - Diabetes mellitus [Unknown]
  - Hypertension [Unknown]
  - Influenza like illness [Not Recovered/Not Resolved]
